FAERS Safety Report 5486618-6 (Version None)
Quarter: 2007Q3

REPORT INFORMATION
  Report Type: 
  Country: None (occurrence: None)
  Receive Date: 20070925
  Receipt Date: 20070806
  Transmission Date: 20080115
  Serious: No
  Sender: FDA-Public Use
  Company Number: 2007US000937

PATIENT
  Sex: Male

DRUGS (4)
  1. VESICARE [Suspect]
     Indication: DRUG USE FOR UNKNOWN INDICATION
     Dosage: 5 MG, UID/QD, ORAL
     Route: 048
     Dates: start: 20070408
  2. ARICEPT [Concomitant]
  3. WARFARIN SODIUM [Concomitant]
  4. PEPCID [Concomitant]

REACTIONS (4)
  - DIARRHOEA [None]
  - DIZZINESS [None]
  - FURUNCLE [None]
  - MEDICATION ERROR [None]
